FAERS Safety Report 16739431 (Version 1)
Quarter: 2019Q3

REPORT INFORMATION
  Report Type: Spontaneous
  Country: US (occurrence: US)
  Receive Date: 20190709
  Receipt Date: 20190709
  Transmission Date: 20191005
  Serious: No
  Sender: FDA-Public Use
  Company Number: None

PATIENT
  Age: 77 Year
  Sex: Female
  Weight: 96.62 kg

DRUGS (1)
  1. BENLYSTA [Suspect]
     Active Substance: BELIMUMAB
     Indication: SYSTEMIC LUPUS ERYTHEMATOSUS
     Dosage: INFUSE 968MG INTRAVENOUSLY  OVER 1 HR AT   WEEKS 0.2 AND 4   AS DIRECTED
     Route: 042
     Dates: start: 201901

REACTIONS (2)
  - Swelling [None]
  - Pain [None]
